FAERS Safety Report 7138608-5 (Version None)
Quarter: 2010Q4

REPORT INFORMATION
  Report Type: 
  Country: None (occurrence: None)
  Receive Date: 20101109
  Receipt Date: 20101029
  Transmission Date: 20110411
  Serious: Yes (Death, Other)
  Sender: FDA-Public Use
  Company Number: THYM-1001202

PATIENT
  Age: 74 Year
  Sex: Male
  Weight: 61 kg

DRUGS (19)
  1. THYMOGLOBULIN [Suspect]
     Dosage: 200 MG, QD, INTRAVENOUS
     Route: 042
     Dates: start: 20090727, end: 20090731
  2. CEFEPIME HYDROCHLORIDE [Concomitant]
  3. CYCLOSPORINE [Concomitant]
  4. ITRACONAZOLE [Concomitant]
  5. METHYLPREDNISOLONE [Concomitant]
  6. TOSUFLOXACIN TOSILATE (TOSUFLOXACIN TOSILATE) [Concomitant]
  7. ACYCLOVIR [Concomitant]
  8. SULFAMETHOXAZOLE W (SULFAMETHOXAZOLE, TRIMETHOPRIM) [Concomitant]
  9. OLMESARTAN MEDOXOMIL [Concomitant]
  10. LANSOPRAZOLE [Concomitant]
  11. TRANEXAMIC ACID (TRANEXAMIC ACID) [Concomitant]
  12. ASCORBIC ACID [Concomitant]
  13. CALCIUM PANTOTHENATE (CALCIUM PANTOTHENATE) [Concomitant]
  14. POTASSIUM CHLORIDE [Concomitant]
  15. HYDROCORTISONE SODIUM SUCCINATE [Concomitant]
  16. CHLORPHENIRAMINE MALEATE (CHLORPHENIRAMINE MALEATE) [Concomitant]
  17. FUROSEMIDE [Concomitant]
  18. INSULIN HUMAN (HUMAN GENETICAL RECOMBINATION) (INSULIN HUMAN) [Concomitant]
  19. METHYLPREDNISOLONE [Concomitant]

REACTIONS (6)
  - CARDIAC FAILURE ACUTE [None]
  - CARDIO-RESPIRATORY ARREST [None]
  - CONSTIPATION [None]
  - LOSS OF CONSCIOUSNESS [None]
  - PANCYTOPENIA [None]
  - PLATELET DESTRUCTION INCREASED [None]
